FAERS Safety Report 9227535 (Version 1)
Quarter: 2013Q2

REPORT INFORMATION
  Report Type: Spontaneous
  Country: SE (occurrence: None)
  Receive Date: 20130410
  Receipt Date: 20130410
  Transmission Date: 20140414
  Serious: Yes (Other)
  Sender: FDA-Public Use
  Company Number: 1656652

PATIENT
  Age: 85 Year
  Sex: Female

DRUGS (3)
  1. (VANCOMYCIN HYDROCHLORIDE) [Suspect]
     Indication: POST PROCEDURAL INFECTION
     Dosage: 1 G GRAM(S), UNKNOWN, INTRAVENOUS (NOT OTHERWISE SPECIFIED)
     Route: 042
     Dates: start: 20130326, end: 20130326
  2. (VANCOMYCIN HYDROCHLORIDE) [Suspect]
     Indication: POST PROCEDURAL INFECTION
     Dosage: 1 G GRAM(S), UNKNOWN, INTRAVENOUS (NOT OTHERWISE SPECIFIED)
     Route: 042
     Dates: start: 20130326, end: 20130326
  3. (STERILE WATER) [Concomitant]

REACTIONS (7)
  - Pharyngeal oedema [None]
  - Asthenia [None]
  - Erythema [None]
  - Erythema [None]
  - Pruritus [None]
  - Wrong technique in drug usage process [None]
  - Incorrect drug administration rate [None]
